FAERS Safety Report 9321573 (Version 1)
Quarter: 2013Q2

REPORT INFORMATION
  Report Type: Spontaneous
  Country: TR (occurrence: None)
  Receive Date: 20130529
  Receipt Date: 20130529
  Transmission Date: 20140414
  Serious: Yes (Death, Other)
  Sender: FDA-Public Use
  Company Number: SYM-2013-04051

PATIENT
  Sex: Male

DRUGS (5)
  1. FLUOROURACIL (FLUOROURACIL) (FLUOROURACIL) [Suspect]
     Indication: GASTRIC CANCER
  2. FLUOROURACIL (FLUOROURACIL) (FLUOROURACIL) [Suspect]
     Indication: GASTRIC CANCER
  3. FLUOROURACIL (FLUOROURACIL) (FLUOROURACIL) [Suspect]
     Indication: GASTRIC CANCER
  4. CISPLATINE (CISPLATINE) [Suspect]
  5. DOCETAXEL [Suspect]

REACTIONS (3)
  - Mucosal inflammation [None]
  - Sepsis [None]
  - Toxicity to various agents [None]
